FAERS Safety Report 19233808 (Version 1)
Quarter: 2021Q2

REPORT INFORMATION
  Report Type: Spontaneous
  Country: GB (occurrence: GB)
  Receive Date: 20210507
  Receipt Date: 20210507
  Transmission Date: 20210717
  Serious: Yes (Life-Threatening, Other)
  Sender: FDA-Public Use
  Company Number: GB-TEVA-2021-GB-1908448

PATIENT
  Age: 60 Year
  Sex: Female

DRUGS (2)
  1. BECLOMETHASONE [Suspect]
     Active Substance: BECLOMETHASONE
     Route: 065
  2. BENADRYL ALLERGY RELIEF [ACRIVASTINE] [Suspect]
     Active Substance: ACRIVASTINE
     Route: 065

REACTIONS (4)
  - Erythema [Unknown]
  - Thrombosis [Recovering/Resolving]
  - Vaccination site mass [Unknown]
  - Deep vein thrombosis [Unknown]

NARRATIVE: CASE EVENT DATE: 20210314
